APPROVED DRUG PRODUCT: SULFAMETHOXAZOLE AND TRIMETHOPRIM DOUBLE STRENGTH
Active Ingredient: SULFAMETHOXAZOLE; TRIMETHOPRIM
Strength: 800MG;160MG
Dosage Form/Route: TABLET;ORAL
Application: A072417 | Product #001
Applicant: MARTEC USA LLC
Approved: Dec 7, 1988 | RLD: No | RS: No | Type: DISCN